FAERS Safety Report 4434094-4 (Version None)
Quarter: 2004Q3

REPORT INFORMATION
  Report Type: 
  Country: None (occurrence: None)
  Receive Date: 20040825
  Receipt Date: 20040817
  Transmission Date: 20050211
  Serious: Yes (Other)
  Sender: FDA-Public Use
  Company Number: CEL-2004-01404-ROC

PATIENT
  Age: 72 Year
  Sex: Female

DRUGS (2)
  1. TUSSIONEX [Suspect]
     Indication: COUGH
     Dosage: SEE IMAGE
     Route: 048
     Dates: start: 19940101
  2. PREDNISONE [Concomitant]

REACTIONS (7)
  - ASPERGILLOSIS [None]
  - BRONCHIECTASIS [None]
  - COUGH [None]
  - DISEASE PROGRESSION [None]
  - MUSCULOSKELETAL DISCOMFORT [None]
  - MYCOBACTERIUM AVIUM COMPLEX INFECTION [None]
  - NON-CARDIAC CHEST PAIN [None]
